FAERS Safety Report 8159623-9 (Version None)
Quarter: 2012Q1

REPORT INFORMATION
  Report Type: 
  Country: None (occurrence: None)
  Receive Date: 20120223
  Receipt Date: 20120217
  Transmission Date: 20120608
  Serious: Yes (Hospitalization)
  Sender: FDA-Public Use
  Company Number: US-B.I. PHARMACEUTICALS,INC./RIDGEFIELD-2012-BP-03141BP

PATIENT
  Age: 83 Year
  Sex: Female

DRUGS (5)
  1. PRADAXA [Suspect]
     Indication: STENT PLACEMENT
     Dosage: 300 MG
     Route: 048
     Dates: start: 20110301, end: 20111016
  2. LASIX [Concomitant]
  3. PREDNISONE TAB [Concomitant]
     Indication: ARTHRITIS
  4. RANEXA [Concomitant]
  5. METOPROLOL [Concomitant]
     Indication: HYPERTENSION

REACTIONS (1)
  - HAEMORRHAGE SUBCUTANEOUS [None]
